FAERS Safety Report 20196565 (Version 1)
Quarter: 2021Q4

REPORT INFORMATION
  Report Type: Spontaneous
  Country: CN (occurrence: CN)
  Receive Date: 20211216
  Receipt Date: 20211216
  Transmission Date: 20220304
  Serious: Yes (Other)
  Sender: FDA-Public Use
  Company Number: CN-BAXTER-2021BAX040907

PATIENT
  Age: 34 Year
  Sex: Female

DRUGS (1)
  1. MANNITOL [Suspect]
     Active Substance: MANNITOL
     Indication: Swelling
     Route: 041
     Dates: start: 20211118, end: 20211122

REACTIONS (3)
  - Pallor [Recovered/Resolved]
  - Chills [Recovered/Resolved]
  - Pyrexia [Recovering/Resolving]

NARRATIVE: CASE EVENT DATE: 20211122
